FAERS Safety Report 23393462 (Version 1)
Quarter: 2024Q1

REPORT INFORMATION
  Report Type: Spontaneous
  Country: CN (occurrence: CN)
  Receive Date: 20240111
  Receipt Date: 20240111
  Transmission Date: 20240410
  Serious: Yes (Other)
  Sender: FDA-Public Use
  Company Number: CN-PFIZER INC-PV202400002615

PATIENT
  Age: 1 Year
  Sex: Male
  Weight: 11 kg

DRUGS (2)
  1. AZITHROMYCIN [Suspect]
     Active Substance: AZITHROMYCIN
     Indication: Pneumonia
     Dosage: 0.05 G, 1X/DAY
     Route: 048
     Dates: start: 20231224, end: 20231225
  2. ACETYLCYSTEINE [Suspect]
     Active Substance: ACETYLCYSTEINE
     Indication: Pneumonia
     Dosage: 0.5 BAGS, 2X/DAY
     Route: 048
     Dates: start: 20231224, end: 20231225

REACTIONS (3)
  - Rash vesicular [Recovering/Resolving]
  - Skin lesion [Recovering/Resolving]
  - Crying [Unknown]

NARRATIVE: CASE EVENT DATE: 20231227
